FAERS Safety Report 4459656-X (Version None)
Quarter: 2004Q3

REPORT INFORMATION
  Report Type: 
  Country: None (occurrence: None)
  Receive Date: 20040917
  Receipt Date: 20031007
  Transmission Date: 20050211
  Serious: Yes (Hospitalization)
  Sender: FDA-Public Use
  Company Number: 20031000087

PATIENT
  Age: 45 Year
  Sex: Female

DRUGS (9)
  1. PHENYTOIN [Suspect]
     Indication: GRAND MAL CONVULSION
     Dosage: 400 MG DAILY
  2. PHENYTOIN [Suspect]
     Indication: GRAND MAL CONVULSION
     Dosage: 300 MG DAILY
  3. PHENYTOIN [Suspect]
     Indication: GRAND MAL CONVULSION
     Dosage: 260 MG DAILY
  4. FLUOROURACIL [Suspect]
     Indication: CHEMOTHERAPY
     Dosage: 600 OTHER DAILY
     Dates: start: 20010101, end: 20010101
  5. DOXORUBICIN [Concomitant]
  6. DOCETAXEL [Concomitant]
  7. CAPECITABINE [Concomitant]
  8. CYCLOPHOSPHAMIDE [Concomitant]
  9. METHOTREXATE [Concomitant]

REACTIONS (1)
  - DRUG TOXICITY [None]
